FAERS Safety Report 8550065 (Version 6)
Quarter: 2013Q4

REPORT INFORMATION
  Report Type: Report from Study
  Country: FR (occurrence: FR)
  Receive Date: 20120507
  Receipt Date: 20131022
  Transmission Date: 20140711
  Serious: Yes (Hospitalization)
  Sender: FDA-Public Use
  Company Number: FR-TEVA-335002USA

PATIENT
  Age: 78 Year
  Sex: Female
  Weight: 74 kg

DRUGS (2)
  1. BENDAMUSTINE [Suspect]
     Dosage: 318 MILLIGRAM DAILY;
     Route: 042
     Dates: start: 20120404
  2. RITUXIMAB [Suspect]
     Dosage: 664 MILLIGRAM DAILY;
     Dates: start: 20120404

REACTIONS (1)
  - Pulmonary embolism [Recovered/Resolved]
